FAERS Safety Report 17039863 (Version 1)
Quarter: 2019Q4

REPORT INFORMATION
  Report Type: Spontaneous
  Country: FR (occurrence: FR)
  Receive Date: 20191116
  Receipt Date: 20191116
  Transmission Date: 20200122
  Serious: Yes (Other)
  Sender: FDA-Public Use
  Company Number: FR-AUROBINDO-AUR-APL-2019-072011

PATIENT
  Age: 63 Year
  Sex: Female
  Weight: 75.5 kg

DRUGS (1)
  1. MEROPENEM ARROW [Suspect]
     Active Substance: MEROPENEM
     Indication: PNEUMONIA
     Dosage: UNK
     Route: 042
     Dates: start: 20191018, end: 20191019

REACTIONS (2)
  - Laryngeal discomfort [Recovered/Resolved]
  - Dyspnoea [Recovered/Resolved]

NARRATIVE: CASE EVENT DATE: 20191018
